FAERS Safety Report 6388315-1 (Version None)
Quarter: 2009Q4

REPORT INFORMATION
  Report Type: 
  Country: None (occurrence: None)
  Receive Date: 20091001
  Receipt Date: 20091001
  Transmission Date: 20100525
  Serious: Yes (Hospitalization)
  Sender: FDA-Public Use
  Company Number: None

PATIENT
  Age: 70 Year
  Sex: Female
  Weight: 84.8226 kg

DRUGS (15)
  1. REMICADE [Suspect]
     Indication: RHEUMATOID ARTHRITIS
     Dosage: 300MG Q8 WEEKS IV
     Route: 042
     Dates: start: 20060324, end: 20090901
  2. PREDNISONE TAB [Concomitant]
  3. CELEBREX [Concomitant]
  4. METFORMIN [Concomitant]
  5. ALLEGRA [Concomitant]
  6. LYRICA [Concomitant]
  7. FLEXERIL [Concomitant]
  8. CARDIZEM [Concomitant]
  9. DARVOCET [Concomitant]
  10. SYNTHROID [Concomitant]
  11. VISTARIL [Concomitant]
  12. ZESTRIL [Concomitant]
  13. LASIX [Concomitant]
  14. ATENOLOL [Concomitant]
  15. PAXIL [Concomitant]

REACTIONS (1)
  - ABDOMINAL ABSCESS [None]
